FAERS Safety Report 8767344 (Version 3)
Quarter: 2012Q4

REPORT INFORMATION
  Report Type: Report from Study
  Country: US (occurrence: US)
  Receive Date: 20120904
  Receipt Date: 20121122
  Transmission Date: 20130627
  Serious: Yes (Death, Hospitalization)
  Sender: FDA-Public Use
  Company Number: US-BRISTOL-MYERS SQUIBB COMPANY-16464760

PATIENT
  Age: 58 Year
  Sex: Male
  Weight: 64.3 kg

DRUGS (4)
  1. IPILIMUMAB [Suspect]
     Indication: MALIGNANT MELANOMA
     Dosage: Recent dose on 15Feb2012
     Route: 042
     Dates: start: 20110629
  2. ARISTOCORT [Concomitant]
  3. LOMOTIL [Concomitant]
  4. ONDANSETRON [Concomitant]

REACTIONS (3)
  - Respiratory failure [Fatal]
  - Large intestine perforation [Not Recovered/Not Resolved]
  - Colitis [Unknown]
